FAERS Safety Report 19808178 (Version 1)
Quarter: 2021Q3

REPORT INFORMATION
  Report Type: Report from Study
  Country: IT (occurrence: IT)
  Receive Date: 20210909
  Receipt Date: 20210909
  Transmission Date: 20211014
  Serious: Yes (Hospitalization)
  Sender: FDA-Public Use
  Company Number: IT-TEVA-2021-IT-1950107

PATIENT
  Age: 76 Year
  Sex: Female

DRUGS (3)
  1. LISINOPRIL. [Suspect]
     Active Substance: LISINOPRIL
     Indication: DRUG ABUSE
     Dosage: 20 DOSAGE FORMS
     Route: 048
     Dates: start: 20210414, end: 20210414
  2. TRITTICO [Concomitant]
     Active Substance: TRAZODONE HYDROCHLORIDE
  3. QUETIAPINE. [Suspect]
     Active Substance: QUETIAPINE
     Indication: DRUG ABUSE
     Dosage: 10 DOSAGE FORMS
     Route: 048
     Dates: start: 20210414, end: 20210414

REACTIONS (2)
  - Drug abuse [Not Recovered/Not Resolved]
  - Coma [Not Recovered/Not Resolved]

NARRATIVE: CASE EVENT DATE: 20210414
